FAERS Safety Report 11533210 (Version 1)
Quarter: 2015Q3

REPORT INFORMATION
  Report Type: Spontaneous
  Country: US (occurrence: US)
  Receive Date: 20150921
  Receipt Date: 20150921
  Transmission Date: 20151125
  Serious: Yes (Other)
  Sender: FDA-Public Use
  Company Number: US-TEVA-594403USA

PATIENT
  Age: 59 Year
  Sex: Female
  Weight: 94 kg

DRUGS (9)
  1. CALCIUM W/VITAMIN D NOS [Concomitant]
     Active Substance: CALCIUM\VITAMIN D
  2. ASPIRIN. [Concomitant]
     Active Substance: ASPIRIN
     Dosage: 81 MILLIGRAM DAILY;
  3. ALBUTEROL. [Concomitant]
     Active Substance: ALBUTEROL
     Dosage: MDI (AS NEEDED)
  4. FLUTICASONE W/SALMETEROL [Concomitant]
     Active Substance: FLUTICASONE PROPIONATE\SALMETEROL XINAFOATE
     Dosage: 250/50 (1 PUFF TWICE DAILY)
  5. CITALOPRAM [Concomitant]
     Active Substance: CITALOPRAM HYDROBROMIDE
     Dosage: 20 MILLIGRAM DAILY;
  6. DOCUSATE SODIUM. [Concomitant]
     Active Substance: DOCUSATE SODIUM
     Dosage: 100 MILLIGRAM DAILY;
  7. COPAXONE [Suspect]
     Active Substance: GLATIRAMER ACETATE
     Indication: RELAPSING-REMITTING MULTIPLE SCLEROSIS
     Dosage: 20 MILLIGRAM DAILY; DISCONTINUED ON DAY 5 OF HOSPITALIZATION AT 0840
     Route: 058
     Dates: start: 2001
  8. MULTIVITAMIN [Concomitant]
     Active Substance: VITAMINS
  9. COPAXONE [Suspect]
     Active Substance: GLATIRAMER ACETATE
     Dosage: RE-INITIATED ON DAY 13 OF HOSPITLAIZATION
     Route: 058

REACTIONS (1)
  - Eosinophilic myocarditis [Recovered/Resolved]
